FAERS Safety Report 6161094-9 (Version None)
Quarter: 2009Q2

REPORT INFORMATION
  Report Type: 
  Country: None (occurrence: None)
  Receive Date: 20090421
  Receipt Date: 20090409
  Transmission Date: 20091009
  Serious: Yes (Hospitalization)
  Sender: FDA-Public Use
  Company Number: US-SANOFI-SYNTHELABO-F01200900354

PATIENT
  Sex: Female

DRUGS (2)
  1. OXALIPLATIN [Suspect]
     Indication: COLORECTAL CANCER
     Dosage: UNK
     Route: 041
  2. XELODA [Suspect]
     Dosage: TWICE DAILY
     Route: 048
     Dates: start: 20070225, end: 20090306

REACTIONS (3)
  - DIARRHOEA [None]
  - RECTAL ULCER [None]
  - STOMATITIS [None]
